FAERS Safety Report 12011692 (Version 1)
Quarter: 2016Q1

REPORT INFORMATION
  Report Type: Spontaneous
  Country: US (occurrence: US)
  Receive Date: 20160205
  Receipt Date: 20160205
  Transmission Date: 20160526
  Serious: No
  Sender: FDA-Public Use
  Company Number: US-BAYER-2016-020822

PATIENT
  Age: 71 Year
  Sex: Female
  Weight: 57.6 kg

DRUGS (4)
  1. ESTER-C [CALCIUM ASCORBATE] [Concomitant]
     Dosage: UNK
  2. BAYER LOW DOSE [Concomitant]
     Active Substance: ASPIRIN
     Dosage: UNK
  3. VITAMIN D [Concomitant]
     Active Substance: CHOLECALCIFEROL
     Dosage: UNK
  4. MIRALAX [Suspect]
     Active Substance: POLYETHYLENE GLYCOL 3350
     Indication: CONSTIPATION
     Dosage: 1 DF, QD
     Route: 048
     Dates: start: 2011

REACTIONS (1)
  - Product use issue [None]
